FAERS Safety Report 15676169 (Version 1)
Quarter: 2018Q4

REPORT INFORMATION
  Report Type: Spontaneous
  Country: US (occurrence: US)
  Receive Date: 20181130
  Receipt Date: 20181130
  Transmission Date: 20190205
  Serious: Yes (Other)
  Sender: FDA-Public Use
  Company Number: US-TEVA-2018-US-979618

PATIENT
  Age: 19 Year
  Sex: Female
  Weight: 60.3 kg

DRUGS (1)
  1. CLARAVIS [Suspect]
     Active Substance: ISOTRETINOIN

REACTIONS (4)
  - Keratitis [Recovered/Resolved]
  - Eye infection viral [Unknown]
  - Eye infection [Recovered/Resolved]
  - Herpes ophthalmic [Recovering/Resolving]

NARRATIVE: CASE EVENT DATE: 20180529
